FAERS Safety Report 21387182 (Version 1)
Quarter: 2022Q3

REPORT INFORMATION
  Report Type: Spontaneous
  Country: RU (occurrence: RU)
  Receive Date: 20220928
  Receipt Date: 20220928
  Transmission Date: 20221027
  Serious: Yes (Hospitalization, Other)
  Sender: FDA-Public Use
  Company Number: RU-PFM-2022-07039

PATIENT

DRUGS (14)
  1. PROPRANOLOL [Suspect]
     Active Substance: PROPRANOLOL HYDROCHLORIDE
     Indication: Cirrhosis alcoholic
     Dosage: 40 MG/DAY
     Route: 065
  2. PROPRANOLOL [Suspect]
     Active Substance: PROPRANOLOL HYDROCHLORIDE
     Indication: Off label use
     Dosage: 20 MG/DAY
     Route: 065
  3. PROPRANOLOL [Suspect]
     Active Substance: PROPRANOLOL HYDROCHLORIDE
     Dosage: 10 MG FOUR TIMES A DAY
     Route: 065
  4. ESOMEPRAZOLE [Suspect]
     Active Substance: ESOMEPRAZOLE
     Indication: Cirrhosis alcoholic
     Dosage: 40 MG/DAY
     Route: 065
  5. SPIRONOLACTONE [Suspect]
     Active Substance: SPIRONOLACTONE
     Indication: Cirrhosis alcoholic
     Dosage: 300 MG/DAY
     Route: 065
  6. FUROSEMIDE [Suspect]
     Active Substance: FUROSEMIDE
     Indication: Cirrhosis alcoholic
     Dosage: 60 MG/DAY
     Route: 065
  7. ADEMETIONINE [Suspect]
     Active Substance: ADEMETIONINE
     Indication: Cirrhosis alcoholic
     Dosage: 800 MG/DAY
     Route: 065
  8. ACETYLCYSTEINE [Suspect]
     Active Substance: ACETYLCYSTEINE
     Indication: Cirrhosis alcoholic
     Dosage: 600 MG/DAY
     Route: 065
  9. LACTULOSE [Suspect]
     Active Substance: LACTULOSE
     Indication: Cirrhosis alcoholic
     Dosage: 30 ML/DAY
     Route: 065
  10. URSODIOL [Suspect]
     Active Substance: URSODIOL
     Indication: Cirrhosis alcoholic
     Dosage: 1250 MG/DAY
     Route: 065
  11. RIVAROXABAN [Suspect]
     Active Substance: RIVAROXABAN
     Indication: Cirrhosis alcoholic
     Dosage: 30 MG/DAY
     Route: 065
  12. OMEPRAZOLE [Suspect]
     Active Substance: OMEPRAZOLE
     Indication: Cirrhosis alcoholic
     Dosage: 40 MG/DAY
     Route: 065
  13. VITAMIN B [Suspect]
     Active Substance: VITAMIN B
     Indication: Cirrhosis alcoholic
     Dosage: UNK
     Route: 065
  14. FOLIC ACID [Suspect]
     Active Substance: FOLIC ACID
     Indication: Cirrhosis alcoholic
     Dosage: 6 MG/DAY
     Route: 065

REACTIONS (5)
  - COVID-19 [Unknown]
  - Portal vein thrombosis [Unknown]
  - Inappropriate schedule of product administration [Unknown]
  - Product use in unapproved indication [Unknown]
  - Off label use [Unknown]
